FAERS Safety Report 13109878 (Version 1)
Quarter: 2017Q1

REPORT INFORMATION
  Report Type: Spontaneous
  Country: US (occurrence: US)
  Receive Date: 20170112
  Receipt Date: 20170112
  Transmission Date: 20170428
  Serious: No
  Sender: FDA-Public Use
  Company Number: US-ROCHE-1172456

PATIENT
  Sex: Female

DRUGS (1)
  1. CATHFLO ACTIVASE [Suspect]
     Active Substance: ALTEPLASE
     Indication: OBSTRUCTION
     Dosage: 2 DOSES
     Route: 050
     Dates: start: 20121219

REACTIONS (1)
  - Device issue [Not Recovered/Not Resolved]
